FAERS Safety Report 4845422-X (Version None)
Quarter: 2005Q4

REPORT INFORMATION
  Report Type: 
  Country: None (occurrence: None)
  Receive Date: 20051129
  Receipt Date: 20051116
  Transmission Date: 20060501
  Serious: Yes (Life-Threatening, Other)
  Sender: FDA-Public Use
  Company Number: 2005158568

PATIENT
  Age: 58 Year
  Sex: Male
  Weight: 88 kg

DRUGS (12)
  1. ARTHROTEC [Suspect]
     Indication: EAR INFECTION
     Dosage: ORAL
     Route: 048
     Dates: start: 20050916, end: 20051001
  2. TRAMADOL HCL [Suspect]
     Indication: EAR INFECTION
     Dosage: ORAL
     Route: 048
     Dates: start: 20050916, end: 20051001
  3. AMOXI-CLAVULANICO (AMOXICILLIN, CLAVULANIC ACID) [Suspect]
     Indication: EAR INFECTION
     Dosage: (500 MG,), ORAL
     Route: 048
     Dates: start: 20050916, end: 20051001
  4. ALL OTHER THERAPEUTIC PRODUCTS (ALL OTHER THERAPEUTIC PRODUCTS) [Concomitant]
  5. ATORVASTATIN CALCIUM [Concomitant]
  6. REPAGLINIDE (REPAGLINIDE) [Concomitant]
  7. METFORMIN HCL [Concomitant]
  8. LOSARTAN POTASSIUM [Concomitant]
  9. GLIMEPIRIDE [Concomitant]
  10. RABEPRAZOLE SODIUM [Concomitant]
  11. RANITIDINE HYDROCHLORIDE [Concomitant]
  12. ALFUZOSIN HYDROCHLORIDE (ALFUZOSIN HYDROCHLORIDE) [Concomitant]

REACTIONS (7)
  - AGRANULOCYTOSIS [None]
  - ANAL ABSCESS [None]
  - BONE MARROW DISORDER [None]
  - HAEMOGLOBIN DECREASED [None]
  - LUNG DISORDER [None]
  - PSEUDOMONAS INFECTION [None]
  - PYREXIA [None]
